FAERS Safety Report 7315284-X (Version None)
Quarter: 2011Q1

REPORT INFORMATION
  Report Type: 
  Country: None (occurrence: None)
  Receive Date: 20110218
  Receipt Date: 20110218
  Transmission Date: 20110831
  Serious: Yes (Hospitalization)
  Sender: FDA-Public Use
  Company Number: None

PATIENT
  Sex: Female

DRUGS (1)
  1. FENTANYL-100 [Suspect]
     Dosage: 1 PATCH Q 72 HOURS TRANSDERMAL
     Route: 062
     Dates: start: 20110217, end: 20110217

REACTIONS (2)
  - FEELING ABNORMAL [None]
  - EUPHORIC MOOD [None]
